FAERS Safety Report 19979626 (Version 2)
Quarter: 2022Q4

REPORT INFORMATION
  Report Type: Spontaneous
  Country: NO (occurrence: NO)
  Receive Date: 20211020
  Receipt Date: 20221013
  Transmission Date: 20230113
  Serious: Yes (Other)
  Sender: FDA-Public Use
  Company Number: NO-ENDO PHARMACEUTICALS INC-2021-012293

PATIENT
  Sex: Male
  Weight: 130 kg

DRUGS (1)
  1. AVEED [Suspect]
     Active Substance: TESTOSTERONE UNDECANOATE
     Indication: Blood testosterone decreased
     Dosage: UNK UNKNOWN, UNKNOWN
     Route: 065
     Dates: start: 20170404, end: 20190706

REACTIONS (4)
  - Reproductive tract disorder [Unknown]
  - Mental disorder [Unknown]
  - Illness anxiety disorder [Unknown]
  - Anxiety disorder [Unknown]

NARRATIVE: CASE EVENT DATE: 20200110
